FAERS Safety Report 12639512 (Version 3)
Quarter: 2016Q3

REPORT INFORMATION
  Report Type: Spontaneous
  Country: IL (occurrence: IL)
  Receive Date: 20160810
  Receipt Date: 20160830
  Transmission Date: 20161109
  Serious: Yes (Hospitalization)
  Sender: FDA-Public Use
  Company Number: IL-BAXTER-2016BAX041430

PATIENT
  Age: 15 Year
  Sex: Male

DRUGS (30)
  1. SODIUM CHLORIDE. [Suspect]
     Active Substance: SODIUM CHLORIDE
     Route: 042
     Dates: start: 20160728
  2. COPPER [Suspect]
     Active Substance: COPPER
     Indication: PARENTERAL NUTRITION
     Route: 042
     Dates: start: 20151101
  3. ZINC [Suspect]
     Active Substance: ZINC\ZINC CHLORIDE
     Indication: PARENTERAL NUTRITION
     Route: 042
     Dates: start: 20151101
  4. MANGANESE [Suspect]
     Active Substance: MANGANESE\MANGANESE CHLORIDE
     Route: 042
     Dates: start: 20160728
  5. SMOFLIPID [Suspect]
     Active Substance: FISH OIL\MEDIUM-CHAIN TRIGLYCERIDES\OLIVE OIL\SOYBEAN OIL
     Indication: PARENTERAL NUTRITION
     Route: 042
     Dates: start: 20151101
  6. STERILE WATER [Suspect]
     Active Substance: WATER
     Indication: PARENTERAL NUTRITION
     Route: 042
     Dates: start: 20151101
  7. GLUCOSE 5% IV INFUSION BP VIAFLO [Suspect]
     Active Substance: DEXTROSE
     Indication: PARENTERAL NUTRITION
     Route: 042
     Dates: start: 20151101
  8. CALCIUM GLUCONATE. [Suspect]
     Active Substance: CALCIUM GLUCONATE
     Indication: PARENTERAL NUTRITION
     Route: 042
     Dates: start: 20151101
  9. MAGNESIUM SULFATE. [Suspect]
     Active Substance: MAGNESIUM SULFATE
     Route: 042
     Dates: start: 20160728
  10. COPPER [Suspect]
     Active Substance: COPPER
     Route: 042
     Dates: start: 20160728
  11. SELENIUM [Suspect]
     Active Substance: SELENIUM
     Indication: PARENTERAL NUTRITION
     Route: 042
     Dates: start: 20151101
  12. SMOFLIPID [Suspect]
     Active Substance: FISH OIL\MEDIUM-CHAIN TRIGLYCERIDES\OLIVE OIL\SOYBEAN OIL
     Route: 042
     Dates: start: 20160728
  13. STERILE WATER [Suspect]
     Active Substance: WATER
     Route: 042
     Dates: start: 20160728
  14. SOLUVIT [Suspect]
     Active Substance: VITAMINS
     Indication: PARENTERAL NUTRITION
     Route: 042
     Dates: start: 20151101
  15. POTASSIUM CHLORIDE. [Suspect]
     Active Substance: POTASSIUM CHLORIDE
     Indication: PARENTERAL NUTRITION
     Route: 042
     Dates: start: 20151101
  16. POTASSIUM CHLORIDE. [Suspect]
     Active Substance: POTASSIUM CHLORIDE
     Route: 042
     Dates: start: 20160728
  17. MANGANESE [Suspect]
     Active Substance: MANGANESE\MANGANESE CHLORIDE
     Indication: PARENTERAL NUTRITION
     Route: 042
     Dates: start: 20151101
  18. SYNTHAMIN [Suspect]
     Active Substance: AMINO ACIDS
     Indication: PARENTERAL NUTRITION
     Route: 042
     Dates: start: 20151101
  19. SOLUVIT [Suspect]
     Active Substance: VITAMINS
     Route: 042
     Dates: start: 20160728
  20. SYNTHAMIN [Suspect]
     Active Substance: AMINO ACIDS
     Route: 042
     Dates: start: 20160728
  21. SODIUM GLYCEROPHOSPHATE [Suspect]
     Active Substance: SODIUM GLYCEROPHOSPHATE
     Indication: PARENTERAL NUTRITION
     Route: 042
     Dates: start: 20151101
  22. SODIUM GLYCEROPHOSPHATE [Suspect]
     Active Substance: SODIUM GLYCEROPHOSPHATE
     Route: 042
     Dates: start: 20160728
  23. SELENIUM [Suspect]
     Active Substance: SELENIUM
     Route: 042
     Dates: start: 20160728
  24. ZINC [Suspect]
     Active Substance: ZINC\ZINC CHLORIDE
     Route: 042
     Dates: start: 20160728
  25. GLUCOSE 5% IV INFUSION BP VIAFLO [Suspect]
     Active Substance: DEXTROSE
     Route: 042
     Dates: start: 20160728
  26. SODIUM CHLORIDE. [Suspect]
     Active Substance: SODIUM CHLORIDE
     Indication: PARENTERAL NUTRITION
     Route: 042
     Dates: start: 20151101
  27. CALCIUM GLUCONATE. [Suspect]
     Active Substance: CALCIUM GLUCONATE
     Route: 042
     Dates: start: 20160728
  28. MAGNESIUM SULFATE. [Suspect]
     Active Substance: MAGNESIUM SULFATE
     Indication: PARENTERAL NUTRITION
     Route: 042
     Dates: start: 20151101
  29. VITALIPID N [Suspect]
     Active Substance: ERGOCALCIFEROL\PHYTONADIONE\TOCOPHEROL\VITAMIN A PALMITATE
     Indication: PARENTERAL NUTRITION
     Route: 042
     Dates: start: 20151101
  30. VITALIPID N [Suspect]
     Active Substance: ERGOCALCIFEROL\PHYTONADIONE\TOCOPHEROL\VITAMIN A PALMITATE
     Route: 042
     Dates: start: 20160728

REACTIONS (1)
  - Pyrexia [Unknown]

NARRATIVE: CASE EVENT DATE: 201607
